FAERS Safety Report 14612695 (Version 2)
Quarter: 2018Q1

REPORT INFORMATION
  Report Type: Spontaneous
  Country: US (occurrence: US)
  Receive Date: 20180308
  Receipt Date: 20180312
  Transmission Date: 20180509
  Serious: No
  Sender: FDA-Public Use
  Company Number: US-BAYER-2018-044936

PATIENT
  Age: 57 Year
  Sex: Female

DRUGS (3)
  1. PREDNISONE. [Suspect]
     Active Substance: PREDNISONE
  2. ALEVE [Suspect]
     Active Substance: NAPROXEN SODIUM
  3. HUMIRA [Suspect]
     Active Substance: ADALIMUMAB
     Dosage: 40 MG, BIW
     Route: 058
     Dates: start: 2016

REACTIONS (7)
  - Sciatica [Unknown]
  - Drug ineffective [Unknown]
  - Glucose tolerance impaired [Unknown]
  - Increased tendency to bruise [Unknown]
  - Contusion [Unknown]
  - Hepatic enzyme abnormal [Unknown]
  - Inflammation [Unknown]

NARRATIVE: CASE EVENT DATE: 2017
